FAERS Safety Report 7527654-5 (Version None)
Quarter: 2011Q2

REPORT INFORMATION
  Report Type: 
  Country: None (occurrence: None)
  Receive Date: 20110512
  Receipt Date: 20110322
  Transmission Date: 20111010
  Serious: No
  Sender: FDA-Public Use
  Company Number: 1000019399

PATIENT
  Age: 25 Year
  Sex: Female

DRUGS (6)
  1. SAVELLA [Suspect]
     Indication: FIBROMYALGIA
     Dosage: SEE IMAGE
     Route: 048
     Dates: start: 20110201, end: 20110201
  2. SAVELLA [Suspect]
     Indication: FIBROMYALGIA
     Dosage: SEE IMAGE
     Route: 048
     Dates: start: 20110201, end: 20110201
  3. SAVELLA [Suspect]
     Indication: FIBROMYALGIA
     Dosage: SEE IMAGE
     Route: 048
     Dates: start: 20110201, end: 20110201
  4. SAVELLA [Suspect]
     Indication: FIBROMYALGIA
     Dosage: SEE IMAGE
     Route: 048
     Dates: start: 20110201
  5. DILAUDID (HYDROMORPHONE HYDROCHLORIDE) (HYDROMORPHONE HYDROCHLORIDE) [Concomitant]
  6. VALIUM [Concomitant]

REACTIONS (2)
  - ANXIETY [None]
  - NERVOUSNESS [None]
